FAERS Safety Report 10447423 (Version 1)
Quarter: 2014Q3

REPORT INFORMATION
  Report Type: Spontaneous
  Country: US (occurrence: US)
  Receive Date: 20140911
  Receipt Date: 20140911
  Transmission Date: 20150326
  Serious: Yes (Hospitalization)
  Sender: FDA-Public Use
  Company Number: US-BEH-2013038709

PATIENT
  Age: 51 Year
  Sex: Female
  Weight: 88 kg

DRUGS (15)
  1. XANAX [Concomitant]
     Active Substance: ALPRAZOLAM
  2. SYMBICORT [Concomitant]
     Active Substance: BUDESONIDE\FORMOTEROL FUMARATE DIHYDRATE
  3. ALBUTEROL. [Concomitant]
     Active Substance: ALBUTEROL
  4. CITALOPRAM [Concomitant]
     Active Substance: CITALOPRAM HYDROBROMIDE
  5. ZEMAIRA [Suspect]
     Active Substance: .ALPHA.1-PROTEINASE INHIBITOR HUMAN
     Indication: OBSTRUCTIVE AIRWAYS DISORDER
     Route: 042
     Dates: start: 20131008, end: 20131008
  6. DIPHENHYDRAMINE [Concomitant]
     Active Substance: DIPHENHYDRAMINE
  7. LIDOCAINE. [Concomitant]
     Active Substance: LIDOCAINE
  8. EPIPEN [Concomitant]
     Active Substance: EPINEPHRINE
  9. ZEMAIRA [Suspect]
     Active Substance: .ALPHA.1-PROTEINASE INHIBITOR HUMAN
     Indication: ALPHA-1 ANTI-TRYPSIN DEFICIENCY
     Route: 042
     Dates: start: 20131008, end: 20131008
  10. COMBIVENT [Concomitant]
     Active Substance: ALBUTEROL SULFATE\IPRATROPIUM BROMIDE
  11. ALEVE [Concomitant]
     Active Substance: NAPROXEN SODIUM
  12. ZEMAIRA [Suspect]
     Active Substance: .ALPHA.1-PROTEINASE INHIBITOR HUMAN
     Indication: ENZYME ABNORMALITY
     Route: 042
     Dates: start: 20131008, end: 20131008
  13. PREDNISONE. [Concomitant]
     Active Substance: PREDNISONE
  14. SODIUM CHLORIDE. [Concomitant]
     Active Substance: SODIUM CHLORIDE
  15. SINGULAIR [Concomitant]
     Active Substance: MONTELUKAST SODIUM

REACTIONS (1)
  - Dyspnoea [Unknown]

NARRATIVE: CASE EVENT DATE: 201310
